FAERS Safety Report 4399880-8 (Version None)
Quarter: 2004Q3

REPORT INFORMATION
  Report Type: 
  Country: None (occurrence: None)
  Receive Date: 20040714
  Receipt Date: 20040628
  Transmission Date: 20050211
  Serious: Yes (Death, Other)
  Sender: FDA-Public Use
  Company Number: DE_040513629

PATIENT
  Age: 55 Year
  Sex: Female

DRUGS (1)
  1. GEMZAR [Suspect]
     Indication: BREAST CANCER METASTATIC
     Dosage: 800 MG/M2
     Dates: start: 20040101

REACTIONS (7)
  - ABASIA [None]
  - BREAST CANCER METASTATIC [None]
  - DYSSTASIA [None]
  - MALIGNANT NEOPLASM PROGRESSION [None]
  - PAIN IN EXTREMITY [None]
  - PARALYSIS [None]
  - SENSORIMOTOR DISORDER [None]
